FAERS Safety Report 5981933-1 (Version None)
Quarter: 2008Q4

REPORT INFORMATION
  Report Type: 
  Country: None (occurrence: None)
  Receive Date: 20081202
  Receipt Date: 20081117
  Transmission Date: 20090506
  Serious: Yes (Hospitalization)
  Sender: FDA-Public Use
  Company Number: KV200800287

PATIENT
  Age: 47 Year
  Sex: Female
  Weight: 56.7 kg

DRUGS (7)
  1. MORPHINE SULFATE(MORPHINE SULFATE) SLOW RELEASE TABLET, 60MG [Suspect]
     Indication: ABDOMINAL PAIN UPPER
     Dosage: 60 MG, 1 TAB AM AND AFTERNOON, 2 TABS PM, ORAL
     Route: 048
     Dates: start: 19950101
  2. MORPHINE SULFATE(MORPHINE SULFATE) SLOW RELEASE TABLET, 60MG [Suspect]
     Indication: PAIN IN EXTREMITY
     Dosage: 60 MG, 1 TAB AM AND AFTERNOON, 2 TABS PM, ORAL
     Route: 048
     Dates: start: 19950101
  3. ALBUTEROL /00139501/ (SALBUTAMOL) [Concomitant]
  4. NOVALOG INSULIN [Concomitant]
  5. LANTUS [Concomitant]
  6. AMITRIPTYLINE HCL [Concomitant]
  7. LEVODOPA (LEVODOPA) [Concomitant]

REACTIONS (3)
  - INCOHERENT [None]
  - LOSS OF CONSCIOUSNESS [None]
  - OVERDOSE [None]
